FAERS Safety Report 10823779 (Version 1)
Quarter: 2015Q1

REPORT INFORMATION
  Report Type: Spontaneous
  Country: US (occurrence: US)
  Receive Date: 20150219
  Receipt Date: 20150219
  Transmission Date: 20150721
  Serious: No
  Sender: FDA-Public Use
  Company Number: US-ABBVIE-14K-163-1311555-00

PATIENT
  Sex: Male
  Weight: 77.18 kg

DRUGS (2)
  1. LOTRIMIN [Concomitant]
     Active Substance: CLOTRIMAZOLE
     Indication: PSORIASIS
  2. HUMIRA [Suspect]
     Active Substance: ADALIMUMAB
     Indication: PSORIASIS
     Route: 058
     Dates: start: 2011

REACTIONS (4)
  - Injection site haemorrhage [Recovered/Resolved]
  - Drug administered at inappropriate site [Recovered/Resolved]
  - Injection site pain [Recovered/Resolved]
  - Wrong technique in drug usage process [Unknown]
